FAERS Safety Report 19970765 (Version 3)
Quarter: 2021Q4

REPORT INFORMATION
  Report Type: Spontaneous
  Country: FR (occurrence: FR)
  Receive Date: 20211019
  Receipt Date: 20211117
  Transmission Date: 20220303
  Serious: Yes (Hospitalization)
  Sender: FDA-Public Use
  Company Number: None

PATIENT
  Age: 73 Year
  Sex: Male
  Weight: 106 kg

DRUGS (17)
  1. NOREPINEPHRINE\NOREPINEPHRINE BITARTRATE [Suspect]
     Active Substance: NOREPINEPHRINE\NOREPINEPHRINE BITARTRATE
     Indication: Hypotension
     Dosage: 20 MILLIGRAM, QD
     Route: 042
     Dates: start: 20210521, end: 20210521
  2. ACYCLOVIR [Suspect]
     Active Substance: ACYCLOVIR
     Indication: Infection
     Dosage: 3300 MILLIGRAM, QD/1100MG 3/J
     Route: 042
     Dates: start: 20210521, end: 20210523
  3. ACYCLOVIR [Suspect]
     Active Substance: ACYCLOVIR
     Dosage: 3300 MILLIGRAM, TID
     Route: 042
     Dates: start: 20210521, end: 20210523
  4. HYDROCORTISONE [Suspect]
     Active Substance: HYDROCORTISONE
     Indication: Infection
     Dosage: 200 MILLIGRAM, QD/50MG 4/J
     Route: 042
     Dates: start: 20210521, end: 20210521
  5. VALACYCLOVIR HYDROCHLORIDE [Suspect]
     Active Substance: VALACYCLOVIR HYDROCHLORIDE
     Indication: Infection
     Dosage: 3300 MILLIGRAM, QD
     Route: 042
     Dates: start: 20210521, end: 20210523
  6. PHYTONADIONE [Suspect]
     Active Substance: PHYTONADIONE
     Indication: Product used for unknown indication
     Dosage: 10 MILLIGRAM, QD
     Route: 042
     Dates: start: 20210521, end: 20210521
  7. METRONIDAZOLE [Suspect]
     Active Substance: METRONIDAZOLE
     Indication: Infection
     Dosage: 1500 MILLIGRAM, QD/500MG 3/J
     Route: 042
     Dates: start: 20210521, end: 20210523
  8. SPIRAMYCIN [Suspect]
     Active Substance: SPIRAMYCIN
     Indication: Infection
     Dosage: 1.5 MILLION INTERNATIONAL UNIT, TID/1.5 MUI 3/J
     Route: 042
     Dates: start: 20210521, end: 20210523
  9. MEROPENEM [Suspect]
     Active Substance: MEROPENEM
     Indication: Infection
     Dosage: 6 GRAM, QD/ 2G 3/J
     Route: 042
     Dates: start: 20210521, end: 20210525
  10. FLUDROCORTISONE ACETATE [Suspect]
     Active Substance: FLUDROCORTISONE ACETATE
     Indication: Infection
     Dosage: 50 MICROGRAM, QD
     Route: 048
     Dates: start: 20210521, end: 20210521
  11. FOSFOMYCIN [Suspect]
     Active Substance: FOSFOMYCIN
     Indication: Infection
     Dosage: 12 GRAM, QD/4G 3/J
     Route: 042
     Dates: start: 20210521, end: 20210523
  12. VITAMIN K [Suspect]
     Active Substance: PHYTONADIONE
     Indication: Product used for unknown indication
     Dosage: 10 MILLIGRAM, QD
     Route: 042
     Dates: start: 20210521, end: 20210521
  13. PANTOPRAZOLE [Concomitant]
     Active Substance: PANTOPRAZOLE
     Dosage: UNK
  14. ACETAMINOPHEN [Concomitant]
     Active Substance: ACETAMINOPHEN
     Dosage: UNK
  15. FERROUS FUMARATE [Concomitant]
     Active Substance: FERROUS FUMARATE
     Dosage: UNK
  16. LEVOTHYROXINE [Concomitant]
     Active Substance: LEVOTHYROXINE
     Dosage: UNK
  17. INSULIN NOS [Concomitant]
     Active Substance: INSULIN NOS
     Dosage: UNK

REACTIONS (1)
  - Epileptic encephalopathy [Recovered/Resolved]

NARRATIVE: CASE EVENT DATE: 20210522
